FAERS Safety Report 5788945-1 (Version None)
Quarter: 2008Q2

REPORT INFORMATION
  Report Type: 
  Country: None (occurrence: None)
  Receive Date: 20080626
  Receipt Date: 20071204
  Transmission Date: 20081010
  Serious: No
  Sender: FDA-Public Use
  Company Number: US-ASTRAZENECA-2007UW27616

PATIENT
  Age: 1 Year
  Sex: Male
  Weight: 10.4 kg

DRUGS (3)
  1. PULMICORT RESPULES [Suspect]
     Indication: ASTHMA
     Route: 055
     Dates: start: 20071001
  2. XOPENEX [Concomitant]
  3. SODIUM CHLORIDE 0.9% [Concomitant]

REACTIONS (1)
  - DYSPNOEA [None]
